FAERS Safety Report 25795958 (Version 1)
Quarter: 2025Q3

REPORT INFORMATION
  Report Type: Spontaneous
  Country: US (occurrence: None)
  Receive Date: 20250911
  Receipt Date: 20250911
  Transmission Date: 20251020
  Serious: Yes (Hospitalization)
  Sender: FDA-CTU
  Company Number: None

PATIENT
  Age: 71 Year
  Sex: Male

DRUGS (13)
  1. TACROLIMUS [Suspect]
     Active Substance: TACROLIMUS
     Indication: Prophylaxis against transplant rejection
     Dosage: FREQUENCY : TWICE A DAY;?
     Route: 048
     Dates: start: 20241220
  2. MYCOPHENOLIC ACID [Suspect]
     Active Substance: MYCOPHENOLIC ACID
     Dosage: FREQUENCY : TWICE A DAY;?
     Route: 048
     Dates: start: 20241220
  3. Fludrocortisone 0.1mg [Concomitant]
     Dates: start: 20250616
  4. CETIRIZINE [Concomitant]
     Active Substance: CETIRIZINE HYDROCHLORIDE
     Dates: start: 20250819
  5. mag-oxide 400mg [Concomitant]
     Dates: start: 20250617
  6. PREDNISONE [Concomitant]
     Active Substance: PREDNISONE
     Dates: start: 20250617
  7. ATOVAQUONE [Concomitant]
     Active Substance: ATOVAQUONE
     Dates: start: 20250616
  8. PRAVASTATIN [Concomitant]
     Active Substance: PRAVASTATIN
     Dates: start: 20250616
  9. ELIQUIS [Concomitant]
     Active Substance: APIXABAN
     Dates: start: 20250616
  10. SERTRALINE [Concomitant]
     Active Substance: SERTRALINE HYDROCHLORIDE
     Dates: start: 20250616
  11. fluticaonse [Concomitant]
     Dates: start: 20250630
  12. OMEPRAZOLE [Concomitant]
     Active Substance: OMEPRAZOLE
     Dates: start: 20250616
  13. AZITHROMYCIN ANHYDROUS [Concomitant]
     Active Substance: AZITHROMYCIN ANHYDROUS
     Dates: start: 20250616

REACTIONS (2)
  - Pneumonia [None]
  - Urinary tract infection [None]
